FAERS Safety Report 7702044-0 (Version None)
Quarter: 2011Q3

REPORT INFORMATION
  Report Type: 
  Country: None (occurrence: None)
  Receive Date: 20110822
  Receipt Date: 20110811
  Transmission Date: 20111222
  Serious: Yes (Other)
  Sender: FDA-Public Use
  Company Number: PHHY2011US66003

PATIENT
  Age: 59 Year
  Sex: Female

DRUGS (15)
  1. LAXATIVES [Concomitant]
  2. PROCHLORPERAZINE [Concomitant]
     Dosage: UNK UKN, UNK
  3. LEVOTHYROXINE SODIUM [Concomitant]
     Dosage: UNK UKN, UNK
  4. ZOCOR [Concomitant]
     Dosage: UNK UKN, UNK
  5. OCTREOTIDE ACETATE [Suspect]
     Indication: DIARRHOEA
     Dosage: 0.75 ML, 2 X DAY
  6. OCTREOTIDE ACETATE [Suspect]
     Indication: CARCINOID SYNDROME
     Dosage: UNK UKN, UNK
  7. SANDOSTATIN LAR [Suspect]
     Indication: VIPOMA
     Dosage: 10 MG, UNK
  8. SANDOSTATIN LAR [Suspect]
     Dosage: 30 MG, UNK
  9. TEMODAR [Suspect]
     Dosage: UNK UKN, UNK
  10. SANDOSTATIN LAR [Suspect]
     Dosage: 20 MG, UNK
  11. HYDROCODONE [Concomitant]
     Dosage: UNK UKN, UNK
  12. OXALIPLATIN [Suspect]
     Dosage: UNK UKN, UNK
  13. MORPHINE [Concomitant]
     Indication: PAIN
     Dosage: UNK UKN, UNK
  14. SANDOSTATIN LAR [Suspect]
     Dosage: 40 MG, UNK
  15. CIPROFLOXACIN [Concomitant]
     Indication: PAIN
     Dosage: UNK UKN, UNK

REACTIONS (7)
  - HERPES ZOSTER [None]
  - NEOPLASM MALIGNANT [None]
  - BLOOD COUNT ABNORMAL [None]
  - CONSTIPATION [None]
  - RASH [None]
  - DRUG INEFFECTIVE [None]
  - DIARRHOEA [None]
